FAERS Safety Report 9123631 (Version 1)
Quarter: 2013Q1

REPORT INFORMATION
  Report Type: Spontaneous
  Country: AT (occurrence: None)
  Receive Date: 20130131
  Receipt Date: 20130131
  Transmission Date: 20140127
  Serious: Yes (Hospitalization)
  Sender: FDA-Public Use
  Company Number: FK201300248

PATIENT
  Age: 73 Year
  Sex: Female
  Weight: 90.5 kg

DRUGS (5)
  1. PACLITAXEL [Suspect]
     Indication: ENDOMETRIAL CANCER
     Dosage: 135 MG/M2, INTRAVENOUS (NOT OTHERWISE SPECIFIED)
     Route: 042
     Dates: start: 20121227, end: 20121227
  2. WARFARIN (WARFARIN) [Concomitant]
  3. BETALOC (METOPROLOL TARTRATE) [Concomitant]
  4. CELEBREX (CELECOXIB) [Concomitant]
  5. UREX (FUROSEMIDE) [Concomitant]

REACTIONS (1)
  - Anaphylactic reaction [None]
